FAERS Safety Report 6089573-3 (Version None)
Quarter: 2009Q1

REPORT INFORMATION
  Report Type: 
  Country: None (occurrence: None)
  Receive Date: 20090224
  Receipt Date: 20090218
  Transmission Date: 20090719
  Serious: Yes (Hospitalization)
  Sender: FDA-Public Use
  Company Number: FR-WYE-G03141809

PATIENT
  Age: 53 Year
  Sex: Male

DRUGS (9)
  1. EFFEXOR [Suspect]
     Dosage: UNKNOWN
     Route: 048
  2. XATRAL [Concomitant]
     Dosage: UNKNOWN
     Route: 048
  3. LIORESAL [Concomitant]
     Dosage: UNKNOWN
  4. CELLCEPT [Concomitant]
     Dosage: UNKNOWN
     Dates: start: 20070601, end: 20080501
  5. ZOLPIDEM [Concomitant]
     Dosage: UNKNOWN
     Route: 048
  6. XANAX [Concomitant]
     Dosage: UNKNOWN
     Route: 048
  7. FORLAX [Concomitant]
     Dosage: UNKNOWN
     Route: 048
  8. VERAPAMIL HYDROCHLORIDE [Suspect]
     Dosage: 240 MG STRENGTH; FREQUENCY UNSPECIFIED
     Route: 048
     Dates: start: 20070101
  9. CETORNAN [Concomitant]
     Dosage: UNKNOWN
     Route: 048

REACTIONS (4)
  - DYSPHAGIA [None]
  - EXTRAPYRAMIDAL DISORDER [None]
  - MUSCLE DISORDER [None]
  - NYSTAGMUS [None]
